FAERS Safety Report 8887217 (Version 1)
Quarter: 2012Q4

REPORT INFORMATION
  Report Type: 
  Country: JP (occurrence: JP)
  Receive Date: 20121105
  Receipt Date: 20121105
  Transmission Date: 20130627
  Serious: Yes (Other)
  Sender: FDA-Public Use
  Company Number: JP-PFIZER INC-2012274250

PATIENT
  Age: 74 Year
  Sex: Female

DRUGS (4)
  1. CELECOX [Suspect]
     Dosage: 200mg/day
     Route: 048
     Dates: start: 20121011, end: 20121022
  2. DIOVAN (VALSARTAN) [Concomitant]
  3. OMEPRAL [Concomitant]
  4. MOBIC [Concomitant]

REACTIONS (2)
  - Depressed level of consciousness [Recovering/Resolving]
  - Gait disturbance [Recovering/Resolving]
